FAERS Safety Report 15456984 (Version 6)
Quarter: 2020Q1

REPORT INFORMATION
  Report Type: Report from Study
  Country: US (occurrence: US)
  Receive Date: 20181002
  Receipt Date: 20200213
  Transmission Date: 20200409
  Serious: Yes (Hospitalization)
  Sender: FDA-Public Use
  Company Number: US-ACTELION-A-NJ2018-178217

PATIENT
  Age: 71 Year
  Sex: Female

DRUGS (7)
  1. ATENOLOL. [Concomitant]
     Active Substance: ATENOLOL
  2. UPTRAVI [Suspect]
     Active Substance: SELEXIPAG
     Dosage: 800 MCG, BID
     Route: 048
  3. ADEMPAS [Concomitant]
     Active Substance: RIOCIGUAT
     Dosage: 1.5 MG, TID
  4. UPTRAVI [Suspect]
     Active Substance: SELEXIPAG
     Indication: PULMONARY ARTERIAL HYPERTENSION
     Dosage: 1600 MCG, BID
     Route: 048
     Dates: start: 20180801
  5. OXYGEN. [Concomitant]
     Active Substance: OXYGEN
     Dosage: REQUIRES OXYGEN ^24/7^
  6. UPTRAVI [Suspect]
     Active Substance: SELEXIPAG
     Dosage: 1200 MCG, BID
     Route: 048
  7. UPTRAVI [Suspect]
     Active Substance: SELEXIPAG
     Dosage: 400 MCG, BID
     Route: 048
     Dates: start: 20180801

REACTIONS (17)
  - Pruritus [Unknown]
  - Feeling abnormal [Unknown]
  - Change of bowel habit [Unknown]
  - Pain in extremity [Unknown]
  - Nausea [Unknown]
  - Oxygen consumption increased [Unknown]
  - Urinary incontinence [Unknown]
  - Decreased appetite [Unknown]
  - Cellulitis [Recovering/Resolving]
  - Cardiac failure congestive [Recovering/Resolving]
  - Feeling hot [Unknown]
  - Dry skin [Unknown]
  - Hypotension [Unknown]
  - Oedema [Recovering/Resolving]
  - Oedema peripheral [Unknown]
  - Weight decreased [Unknown]
  - Localised infection [Unknown]

NARRATIVE: CASE EVENT DATE: 20180811
